FAERS Safety Report 17487806 (Version 1)
Quarter: 2020Q1

REPORT INFORMATION
  Report Type: Spontaneous
  Country: US (occurrence: US)
  Receive Date: 20200220
  Receipt Date: 20200220
  Transmission Date: 20200409
  Serious: Yes (Hospitalization)
  Sender: FDA-Public Use
  Company Number: None

PATIENT
  Age: 59 Year
  Sex: Female

DRUGS (10)
  1. MELOXICAM TAB 15 MG [Concomitant]
  2. D3 CAP 1000 UNIT [Concomitant]
  3. HYDROXYCHLOR 200 MG [Concomitant]
     Active Substance: HYDROXYCHLOROQUINE
  4. XANAX TAB 0.25 MG [Concomitant]
  5. CALCIUM CARB TAB 1250MG [Concomitant]
  6. ESTRADIOL TAB 2 MG [Concomitant]
  7. CYCLOBENZAPR TAB 10 MG [Concomitant]
  8. GABAPENTIN CAP 100 MG [Concomitant]
     Active Substance: GABAPENTIN
  9. VITAMIN C TAB 500 MG [Concomitant]
  10. COSENTYX [Suspect]
     Active Substance: SECUKINUMAB
     Indication: PSORIASIS
     Dosage: ?          OTHER FREQUENCY:EVERY 4 WEEKS;?
     Route: 058
     Dates: start: 20190313

REACTIONS (3)
  - Therapy cessation [None]
  - Insurance issue [None]
  - Pneumonia [None]
